FAERS Safety Report 5086923-1 (Version None)
Quarter: 2006Q3

REPORT INFORMATION
  Report Type: 
  Country: None (occurrence: None)
  Receive Date: 20060818
  Receipt Date: 20060807
  Transmission Date: 20061208
  Serious: Yes (Other)
  Sender: FDA-Public Use
  Company Number: 2006096955

PATIENT
  Age: 86 Year
  Sex: Male
  Weight: 95.2554 kg

DRUGS (5)
  1. NEURONTIN [Suspect]
     Indication: PAIN
     Dates: start: 20040101
  2. LISINOPRIL [Concomitant]
  3. ENALAPRIL MALEATE [Concomitant]
  4. SIMVASTATIN [Concomitant]
  5. DURAGESIC-100 [Concomitant]

REACTIONS (5)
  - ABNORMAL BEHAVIOUR [None]
  - DECREASED ACTIVITY [None]
  - DRUG INEFFECTIVE [None]
  - LETHARGY [None]
  - SOMNOLENCE [None]
